FAERS Safety Report 9479095 (Version 1)
Quarter: 2013Q3

REPORT INFORMATION
  Report Type: Spontaneous
  Country: US (occurrence: US)
  Receive Date: 20130827
  Receipt Date: 20130827
  Transmission Date: 20140515
  Serious: Yes (Hospitalization)
  Sender: FDA-Public Use
  Company Number: US-GLAXOSMITHKLINE-A1039046A

PATIENT
  Age: 60 Year
  Sex: Female

DRUGS (2)
  1. BACTROBAN [Suspect]
     Indication: INFECTION
     Dates: start: 20121227
  2. SORILUX FOAM [Concomitant]

REACTIONS (1)
  - Hospitalisation [Unknown]
